FAERS Safety Report 6091911-2 (Version None)
Quarter: 2009Q1

REPORT INFORMATION
  Report Type: 
  Country: None (occurrence: None)
  Receive Date: 20090225
  Receipt Date: 20080926
  Transmission Date: 20090719
  Serious: No
  Sender: FDA-Public Use
  Company Number: A0749435A

PATIENT
  Sex: Male

DRUGS (2)
  1. VALTREX [Suspect]
     Indication: ENCEPHALITIS HERPES
     Route: 048
     Dates: start: 20080901
  2. UNKNOWN [Concomitant]

REACTIONS (1)
  - MENTAL STATUS CHANGES [None]
